FAERS Safety Report 10026221 (Version 2)
Quarter: 2014Q1

REPORT INFORMATION
  Report Type: Spontaneous
  Country: US (occurrence: US)
  Receive Date: 20140320
  Receipt Date: 20140320
  Transmission Date: 20141002
  Serious: No
  Sender: FDA-Public Use
  Company Number: US-ALLERGAN-1315647US

PATIENT
  Age: 73 Year
  Sex: Male

DRUGS (2)
  1. LUMIGAN 0.01% [Suspect]
     Indication: INTRAOCULAR PRESSURE INCREASED
     Dosage: 2 GTT, UNK
     Route: 047
     Dates: start: 2011
  2. SYSTANE [Concomitant]
     Indication: DRY EYE
     Dosage: 2 GTT, PRN
     Route: 047
     Dates: start: 2009

REACTIONS (2)
  - Intraocular pressure increased [Recovering/Resolving]
  - Ocular discomfort [Unknown]
